FAERS Safety Report 24833747 (Version 1)
Quarter: 2025Q1

REPORT INFORMATION
  Report Type: Spontaneous
  Country: US (occurrence: US)
  Receive Date: 20250112
  Receipt Date: 20250112
  Transmission Date: 20250409
  Serious: No
  Sender: BAUSCH AND LOMB
  Company Number: US-BAUSCHBL-2025BNL000419

PATIENT
  Sex: Male

DRUGS (2)
  1. MIEBO [Suspect]
     Active Substance: PERFLUOROHEXYLOCTANE
     Indication: Product used for unknown indication
     Route: 047
  2. MIEBO [Suspect]
     Active Substance: PERFLUOROHEXYLOCTANE
     Route: 047

REACTIONS (7)
  - Visual impairment [Unknown]
  - Product container issue [Unknown]
  - Intentional product use issue [Unknown]
  - Product use complaint [Unknown]
  - Product use issue [Unknown]
  - Product complaint [Unknown]
  - Product knowledge deficit [Unknown]
